FAERS Safety Report 11051472 (Version 1)
Quarter: 2015Q2

REPORT INFORMATION
  Report Type: Spontaneous
  Country: BA (occurrence: BA)
  Receive Date: 20150421
  Receipt Date: 20150421
  Transmission Date: 20150821
  Serious: Yes (Death)
  Sender: FDA-Public Use
  Company Number: BA-ACTAVIS-2015-08103

PATIENT
  Age: 53 Year
  Sex: Male

DRUGS (2)
  1. CEFAZOLIN ACTAVIS [Suspect]
     Active Substance: CEFAZOLIN
     Indication: PNEUMONIA
     Dosage: 4 G, UNK
     Route: 042
     Dates: start: 20150406, end: 20150406
  2. TEOKAP [Concomitant]
     Active Substance: THEOPHYLLINE ANHYDROUS
     Indication: PNEUMONIA
     Dosage: 400 MG, UNK
     Route: 048

REACTIONS (2)
  - Respiratory arrest [None]
  - Sudden death [Fatal]

NARRATIVE: CASE EVENT DATE: 20150406
